FAERS Safety Report 18146114 (Version 2)
Quarter: 2020Q3

REPORT INFORMATION
  Report Type: Spontaneous
  Country: US (occurrence: US)
  Receive Date: 20200813
  Receipt Date: 20200814
  Transmission Date: 20201103
  Serious: Yes (Hospitalization)
  Sender: FDA-Public Use
  Company Number: US-PFIZER INC-2020306873

PATIENT
  Age: 40 Year
  Sex: Male
  Weight: 61.23 kg

DRUGS (1)
  1. CHANTIX [Suspect]
     Active Substance: VARENICLINE TARTRATE
     Dosage: UNK

REACTIONS (11)
  - Abnormal dreams [Unknown]
  - Craniocerebral injury [Unknown]
  - Impatience [Unknown]
  - Memory impairment [Unknown]
  - Anger [Unknown]
  - Accident [Unknown]
  - Brain injury [Unknown]
  - Expired product administered [Unknown]
  - Prescription drug used without a prescription [Unknown]
  - Dysgeusia [Unknown]
  - Intentional product misuse [Unknown]
